FAERS Safety Report 7753430-4 (Version None)
Quarter: 2011Q3

REPORT INFORMATION
  Report Type: 
  Country: None (occurrence: None)
  Receive Date: 20110913
  Receipt Date: 20110829
  Transmission Date: 20111222
  Serious: Yes (Other)
  Sender: FDA-Public Use
  Company Number: 1000023559

PATIENT
  Age: 83 Year
  Sex: Male

DRUGS (6)
  1. ADIRO (ACETYLSALICYLIC ACID) (ACETYLSALICYLIC ACID) [Concomitant]
  2. SPIRIVA (TIOTROPIUM BROMIDE) (TIOTROPIUM BROMIDE) [Concomitant]
  3. OMEPRAZOLE [Concomitant]
  4. ZOCOR [Concomitant]
  5. ROFLUMILAST (ROFLUMILAST) (500 MILLIGRAM, TABLETS) [Suspect]
     Indication: RESPIRATORY FAILURE
     Dosage: 500 MCG (500 MCG, 1 IN 1 D), ORAL
     Route: 048
     Dates: start: 20110309
  6. SERETIDE (FLUTICASONE, SALMETEROL) (FLUTICASONE, SALMETEROL) [Concomitant]

REACTIONS (2)
  - PSORIASIS [None]
  - PRE-EXISTING CONDITION IMPROVED [None]
